FAERS Safety Report 17042623 (Version 1)
Quarter: 2019Q4

REPORT INFORMATION
  Report Type: Spontaneous
  Country: CO (occurrence: CO)
  Receive Date: 20191118
  Receipt Date: 20191118
  Transmission Date: 20200122
  Serious: Yes (Other)
  Sender: FDA-Public Use
  Company Number: CO-ELI_LILLY_AND_COMPANY-CO201911005667

PATIENT
  Age: 63 Year
  Sex: Female

DRUGS (6)
  1. ROSUVASTATIN. [Concomitant]
     Active Substance: ROSUVASTATIN
     Indication: HYPERCHOLESTEROLAEMIA
     Dosage: -1 UNK, DAILY
     Route: 048
  2. ENALAPRIL [Concomitant]
     Active Substance: ENALAPRIL
     Indication: HYPERTENSION
     Dosage: 1 UNK, DAILY
     Route: 048
  3. METOPROLOL. [Concomitant]
     Active Substance: METOPROLOL
     Indication: ACUTE MYOCARDIAL INFARCTION
     Dosage: 200 MG, DAILY
     Route: 048
  4. EFFIENT [Suspect]
     Active Substance: PRASUGREL HYDROCHLORIDE
     Indication: ACUTE MYOCARDIAL INFARCTION
     Dosage: 10 MG, DAILY
     Route: 048
     Dates: start: 20191011
  5. ACETYLSALICYLIC ACID [Concomitant]
     Active Substance: ASPIRIN
     Indication: ACUTE MYOCARDIAL INFARCTION
     Dosage: 100 MG, DAILY
     Route: 048
  6. SITAGLIPTIN METFORMIN [Concomitant]
     Active Substance: METFORMIN HYDROCHLORIDE\SITAGLIPTIN PHOSPHATE
     Indication: HYPERGLYCAEMIA
     Dosage: -1 UNK, DAILY
     Route: 048

REACTIONS (1)
  - Arrhythmia [Recovered/Resolved]

NARRATIVE: CASE EVENT DATE: 20191018
